FAERS Safety Report 9832165 (Version 1)
Quarter: 2014Q1

REPORT INFORMATION
  Report Type: Spontaneous
  Country: CA (occurrence: CA)
  Receive Date: 20140121
  Receipt Date: 20140121
  Transmission Date: 20141002
  Serious: Yes (Hospitalization, Other)
  Sender: FDA-Public Use
  Company Number: CA-ASTRAZENECA-2014SE03060

PATIENT
  Age: 73 Year
  Sex: Female
  Weight: 60.8 kg

DRUGS (8)
  1. NEXIUM [Suspect]
     Route: 048
  2. ADRIEN GAGNON RELAXEN-DAY FORMULA [Concomitant]
  3. AVAPRO [Concomitant]
  4. GENACOL [Concomitant]
  5. IBUPROFEN [Concomitant]
  6. K-DUR [Concomitant]
  7. PAXIL [Concomitant]
  8. TYLENOL [Concomitant]

REACTIONS (5)
  - Grand mal convulsion [Recovered/Resolved]
  - Hypocalcaemia [Recovered/Resolved]
  - Hypokalaemia [Recovered/Resolved]
  - Delirium [Recovered/Resolved]
  - Hypomagnesaemia [Recovered/Resolved]
